FAERS Safety Report 5259626-8 (Version None)
Quarter: 2007Q1

REPORT INFORMATION
  Report Type: 
  Country: None (occurrence: None)
  Receive Date: 20070309
  Receipt Date: 20070228
  Transmission Date: 20070707
  Serious: Yes (Hospitalization)
  Sender: FDA-Public Use
  Company Number: PHMT2007CA00754

PATIENT
  Age: 67 Year
  Sex: Female

DRUGS (2)
  1. AREDIA [Suspect]
     Indication: METASTASES TO BONE
     Dosage: 90MG EVERY MONTH
     Dates: start: 20060801, end: 20060901
  2. ZOMETA [Suspect]
     Indication: METASTASES TO BONE
     Dosage: 4MG EVERY MONTH
     Route: 042
     Dates: start: 20060901

REACTIONS (5)
  - BACK PAIN [None]
  - BREAST PAIN [None]
  - DYSPEPSIA [None]
  - PAIN IN EXTREMITY [None]
  - PHLEBITIS [None]
